FAERS Safety Report 16146105 (Version 2)
Quarter: 2019Q2

REPORT INFORMATION
  Report Type: Spontaneous
  Country: TR (occurrence: TR)
  Receive Date: 20190402
  Receipt Date: 20190424
  Transmission Date: 20190711
  Serious: Yes (Other)
  Sender: FDA-Public Use
  Company Number: TR-ROCHE-2289924

PATIENT
  Age: 29 Year
  Sex: Male

DRUGS (2)
  1. OCREVUS [Suspect]
     Active Substance: OCRELIZUMAB
     Indication: MULTIPLE SCLEROSIS
     Route: 065
     Dates: start: 20190316
  2. ACETYLSALICYLIC ACID [Concomitant]
     Active Substance: ASPIRIN

REACTIONS (4)
  - Hemiparesis [Not Recovered/Not Resolved]
  - Hemiplegia [Recovered/Resolved with Sequelae]
  - Thalamic infarction [Unknown]
  - Dysarthria [Unknown]

NARRATIVE: CASE EVENT DATE: 20190319
